FAERS Safety Report 13729540 (Version 1)
Quarter: 2017Q3

REPORT INFORMATION
  Report Type: Spontaneous
  Country: US (occurrence: US)
  Receive Date: 20170707
  Receipt Date: 20170707
  Transmission Date: 20171127
  Serious: No
  Sender: FDA-Public Use
  Company Number: US-JNJFOC-20160925228

PATIENT
  Age: 82 Year
  Sex: Male
  Weight: 80.29 kg

DRUGS (1)
  1. XARELTO [Suspect]
     Active Substance: RIVAROXABAN
     Indication: PULMONARY THROMBOSIS
     Route: 048
     Dates: start: 201601

REACTIONS (2)
  - Blood urine present [Recovering/Resolving]
  - Product label issue [Unknown]

NARRATIVE: CASE EVENT DATE: 20160923
